FAERS Safety Report 4453838-9 (Version None)
Quarter: 2004Q3

REPORT INFORMATION
  Report Type: 
  Country: None (occurrence: None)
  Receive Date: 20040826
  Receipt Date: 20040504
  Transmission Date: 20050211
  Serious: No
  Sender: FDA-Public Use
  Company Number: WAES 0405USA00180

PATIENT
  Age: 51 Year
  Sex: Male
  Weight: 68.0396 kg

DRUGS (4)
  1. ZETIA [Suspect]
     Indication: LIPIDS INCREASED
     Dosage: 10 MG/DAILY/PO
     Route: 048
     Dates: start: 20040110, end: 20040325
  2. ZOCOR [Concomitant]
  3. ASPIRIN [Concomitant]
  4. VITAMINS (UNSPECIFIED) [Concomitant]

REACTIONS (1)
  - LOW DENSITY LIPOPROTEIN ABNORMAL [None]
